FAERS Safety Report 18400894 (Version 12)
Quarter: 2021Q4

REPORT INFORMATION
  Report Type: Report from Study
  Country: US (occurrence: US)
  Receive Date: 20201020
  Receipt Date: 20211014
  Transmission Date: 20220303
  Serious: Yes (Other)
  Sender: FDA-Public Use
  Company Number: US-NOVARTISPH-NVSC2020US275847

PATIENT
  Age: 4 Month
  Sex: Female

DRUGS (1)
  1. ZOLGENSMA [Suspect]
     Active Substance: ONASEMNOGENE ABEPARVOVEC-XIOI
     Indication: Spinal muscular atrophy
     Dosage: UNK UNK, ONCE/SINGLE
     Route: 042
     Dates: start: 20201009, end: 20201009

REACTIONS (8)
  - Aspiration [Unknown]
  - Movement disorder [Unknown]
  - Decreased appetite [Unknown]
  - Hypersomnia [Unknown]
  - Abdominal discomfort [Unknown]
  - Irritability [Unknown]
  - Ill-defined disorder [Unknown]
  - Troponin T increased [Unknown]

NARRATIVE: CASE EVENT DATE: 20201027
